FAERS Safety Report 5030630-8 (Version None)
Quarter: 2006Q2

REPORT INFORMATION
  Report Type: 
  Country: None (occurrence: None)
  Receive Date: 20060615
  Receipt Date: 20060602
  Transmission Date: 20061013
  Serious: Yes (Hospitalization)
  Sender: FDA-Public Use
  Company Number: 2006070999

PATIENT
  Age: 55 Year
  Sex: Male
  Weight: 75.4 kg

DRUGS (16)
  1. SUTENT [Suspect]
     Indication: RENAL CELL CARCINOMA STAGE UNSPECIFIED
     Dosage: 37.5 MG (37.5 MG, 1 IN 1 D), ORAL
     Route: 048
     Dates: start: 20060502, end: 20060529
  2. MAXZIDE [Concomitant]
  3. POTASSIUM CHLORIDE [Concomitant]
  4. METOPROLOL SUCCINATE [Concomitant]
  5. GEMFIBROZIL [Concomitant]
  6. OXYCONTIN [Concomitant]
  7. OXYCODONE (OXYCODONE) [Concomitant]
  8. CELECOXIB (CELECOXIB) [Concomitant]
  9. FLUTICASONE PROPIONATE [Concomitant]
  10. ASPIRIN [Concomitant]
  11. DOCUSATE (DOCUSATE) [Concomitant]
  12. HERBAL PREPARATION (HERBAL PREPARATION) [Concomitant]
  13. ZOLPIDEM (ZOLPIDEM) [Concomitant]
  14. COMPAZINE [Concomitant]
  15. OLANZAPINE [Concomitant]
  16. VALSARTAN [Concomitant]

REACTIONS (10)
  - ASTHENIA [None]
  - BLOOD GLUCOSE INCREASED [None]
  - DEHYDRATION [None]
  - HYPOTENSION [None]
  - NAUSEA [None]
  - PLATELET COUNT DECREASED [None]
  - RENAL FAILURE ACUTE [None]
  - TROPONIN I INCREASED [None]
  - VOMITING [None]
  - WHITE BLOOD CELL COUNT DECREASED [None]
